FAERS Safety Report 6994208-9 (Version None)
Quarter: 2010Q3

REPORT INFORMATION
  Report Type: 
  Country: None (occurrence: None)
  Receive Date: 20100917
  Receipt Date: 20100714
  Transmission Date: 20110219
  Serious: No
  Sender: FDA-Public Use
  Company Number: US-ASTRAZENECA-2010SE33124

PATIENT
  Sex: Female

DRUGS (5)
  1. SEROQUEL XR [Suspect]
     Indication: MANIA
     Route: 048
     Dates: start: 20080101
  2. SEROQUEL XR [Suspect]
     Route: 048
  3. SEROQUEL XR [Suspect]
     Route: 048
  4. CLONIPINE [Concomitant]
  5. CYMBALTA [Concomitant]

REACTIONS (3)
  - ELEVATED MOOD [None]
  - ENERGY INCREASED [None]
  - SLUGGISHNESS [None]
